FAERS Safety Report 7405901-8 (Version None)
Quarter: 2011Q2

REPORT INFORMATION
  Report Type: 
  Country: None (occurrence: None)
  Receive Date: 20110401
  Receipt Date: 20100514
  Transmission Date: 20111010
  Serious: Yes (Hospitalization)
  Sender: FDA-Public Use
  Company Number: 2011MA002847

PATIENT
  Age: 70 Year
  Sex: Female

DRUGS (5)
  1. TRAMADOL HCL [Concomitant]
  2. GABAPENTIN [Concomitant]
  3. PACLITAXEL [Suspect]
     Dosage: ; IV
     Route: 042
     Dates: start: 20100324
  4. CARBOPATIN [Suspect]
     Dates: start: 20100324
  5. SIMVASTATIN [Concomitant]

REACTIONS (2)
  - BLOOD BILIRUBIN INCREASED [None]
  - ALANINE AMINOTRANSFERASE INCREASED [None]
